FAERS Safety Report 25071908 (Version 1)
Quarter: 2025Q1

REPORT INFORMATION
  Report Type: Spontaneous
  Country: US (occurrence: US)
  Receive Date: 20250313
  Receipt Date: 20250313
  Transmission Date: 20250408
  Serious: Yes (Hospitalization, Other)
  Sender: BRISTOL-MYERS SQUIBB COMPANY
  Company Number: US-BRISTOL-MYERS SQUIBB COMPANY-2025-033465

PATIENT
  Age: 78 Year
  Sex: Female

DRUGS (14)
  1. REVLIMID [Suspect]
     Active Substance: LENALIDOMIDE
     Indication: Plasma cell myeloma
     Dosage: ON FOR 21 DAYS, OFF FOR 7
     Route: 048
     Dates: start: 2019
  2. ESZOPICLONE [Concomitant]
     Active Substance: ESZOPICLONE
  3. FUROSEMIDE [Concomitant]
     Active Substance: FUROSEMIDE
  4. CHOLESTYRAMINE [Concomitant]
     Active Substance: CHOLESTYRAMINE
  5. KETOCONAZOLE [Concomitant]
     Active Substance: KETOCONAZOLE
  6. PAROXETINE [Concomitant]
     Active Substance: PAROXETINE
  7. METOPROLOL SUCCINATE [Concomitant]
     Active Substance: METOPROLOL SUCCINATE
  8. LEVOTHYROXINE [Concomitant]
     Active Substance: LEVOTHYROXINE
  9. VITAMIN D2 [Concomitant]
     Active Substance: ERGOCALCIFEROL
  10. AZELASTINE [Concomitant]
     Active Substance: AZELASTINE
  11. ZOMETA [Concomitant]
     Active Substance: ZOLEDRONIC ACID
  12. NEXIUM [Concomitant]
     Active Substance: ESOMEPRAZOLE MAGNESIUM
  13. ASPIRIN [Concomitant]
     Active Substance: ASPIRIN
  14. ALLEGRA ALLERGY [Concomitant]
     Active Substance: FEXOFENADINE HYDROCHLORIDE

REACTIONS (1)
  - Pneumonia [Not Recovered/Not Resolved]

NARRATIVE: CASE EVENT DATE: 20250303
